FAERS Safety Report 20471069 (Version 1)
Quarter: 2022Q1

REPORT INFORMATION
  Report Type: Spontaneous
  Country: US (occurrence: US)
  Receive Date: 20220214
  Receipt Date: 20220214
  Transmission Date: 20220423
  Serious: Yes (Death, Other)
  Sender: FDA-Public Use
  Company Number: US-PURDUE PHARMA-USA-2021-0289349

PATIENT
  Age: 78 Year
  Sex: Male
  Weight: 83.9 kg

DRUGS (3)
  1. SENOKOT [Suspect]
     Active Substance: SENNOSIDES
     Indication: Constipation
     Dosage: UNK
     Route: 048
     Dates: start: 202109
  2. SENOKOT [Suspect]
     Active Substance: SENNOSIDES
     Indication: Bowel movement irregularity
     Dosage: 1-2 TABLET, AM
     Route: 048
     Dates: start: 20211115, end: 20211118
  3. SENOKOT [Suspect]
     Active Substance: SENNOSIDES
     Dosage: UNK
     Route: 048
     Dates: start: 202107, end: 202112

REACTIONS (3)
  - Death [Fatal]
  - Asthma [Recovered/Resolved]
  - Dyspnoea [Not Recovered/Not Resolved]

NARRATIVE: CASE EVENT DATE: 20211101
